FAERS Safety Report 19964387 (Version 1)
Quarter: 2021Q4

REPORT INFORMATION
  Report Type: Other
  Country: IN (occurrence: IN)
  Receive Date: 20211018
  Receipt Date: 20211018
  Transmission Date: 20220303
  Serious: Yes (Hospitalization, Other)
  Sender: FDA-Public Use
  Company Number: IN-MERCK HEALTHCARE KGAA-9272116

PATIENT

DRUGS (1)
  1. METFORMIN HYDROCHLORIDE [Suspect]
     Active Substance: METFORMIN HYDROCHLORIDE
     Indication: Diabetes mellitus
     Route: 064

REACTIONS (4)
  - Premature baby [Recovered/Resolved]
  - Foetal growth restriction [Unknown]
  - Foetal hypokinesia [Unknown]
  - Foetal exposure during pregnancy [Recovered/Resolved]
